FAERS Safety Report 8769422 (Version 1)
Quarter: 2012Q4

REPORT INFORMATION
  Report Type: 
  Country: ZA (occurrence: ZA)
  Receive Date: 20120905
  Receipt Date: 20120905
  Transmission Date: 20130627
  Serious: Yes (Death, Hospitalization, Other)
  Sender: FDA-Public Use
  Company Number: ZA-BAYER-2012-089228

PATIENT
  Age: 33 Year
  Sex: Female

DRUGS (15)
  1. TRIMETHOPRIM AND SULFAMETHOXAZOLE [Suspect]
     Indication: ISOSPORIASIS
     Dosage: 1920 mg, UNK
  2. TRIMETHOPRIM AND SULFAMETHOXAZOLE [Suspect]
     Indication: DIARRHOEA
     Dosage: 960 mg, UNK
  3. TRIMETHOPRIM AND SULFAMETHOXAZOLE [Suspect]
     Indication: PROPHYLAXIS
     Route: 048
  4. TRIMETHOPRIM AND SULFAMETHOXAZOLE [Suspect]
     Indication: ISOSPORIASIS
     Route: 042
  5. CIPROFLOXACIN [Suspect]
     Indication: ISOSPORIASIS
     Dosage: treatment
  6. CIPROFLOXACIN [Suspect]
     Indication: DIARRHOEA
     Dosage: 500 mg, UNK
  7. CIPROFLOXACIN [Suspect]
     Indication: PROPHYLAXIS
  8. STAVUDINE [Concomitant]
     Indication: ANTIRETROVIRAL THERAPY
  9. LAMIVUDINE [Concomitant]
     Indication: ANTIRETROVIRAL THERAPY
  10. LOPINAVIR [Concomitant]
     Indication: ANTIRETROVIRAL THERAPY
  11. RITONAVIR [Concomitant]
     Indication: ANTIRETROVIRAL THERAPY
  12. ALBENDAZOLE [Concomitant]
     Indication: ISOSPORIASIS
  13. ALBENDAZOLE [Concomitant]
     Indication: DIARRHOEA
  14. NITAZOXANIDE [Concomitant]
     Indication: ISOSPORIASIS
  15. NITAZOXANIDE [Concomitant]
     Indication: DIARRHOEA

REACTIONS (4)
  - Isosporiasis [Fatal]
  - Diarrhoea [Fatal]
  - Electrolyte imbalance [None]
  - Drug resistance [None]
